FAERS Safety Report 15497903 (Version 8)
Quarter: 2022Q1

REPORT INFORMATION
  Report Type: Spontaneous
  Country: US (occurrence: US)
  Receive Date: 20181015
  Receipt Date: 20220316
  Transmission Date: 20220423
  Serious: No
  Sender: FDA-Public Use
  Company Number: US-PFIZER INC-2018410372

PATIENT
  Age: 68 Year
  Sex: Male
  Weight: 81.19 kg

DRUGS (2)
  1. GENOTROPIN [Suspect]
     Active Substance: SOMATROPIN
     Indication: Growth hormone deficiency
     Dosage: 0.2 MG, DAILY
     Route: 058
  2. GENOTROPIN [Suspect]
     Active Substance: SOMATROPIN
     Indication: Hypopituitarism
     Dosage: 0.2 MG, 1X/DAY
     Route: 058
     Dates: start: 201806

REACTIONS (5)
  - Drug dose omission by device [Not Recovered/Not Resolved]
  - Device issue [Not Recovered/Not Resolved]
  - Device leakage [Not Recovered/Not Resolved]
  - Device operational issue [Not Recovered/Not Resolved]
  - Somnolence [Not Recovered/Not Resolved]

NARRATIVE: CASE EVENT DATE: 20200815
